FAERS Safety Report 4492340-5 (Version None)
Quarter: 2004Q3

REPORT INFORMATION
  Report Type: 
  Country: None (occurrence: None)
  Receive Date: 20040921
  Receipt Date: 20040317
  Transmission Date: 20050211
  Serious: Yes (Hospitalization)
  Sender: FDA-Public Use
  Company Number: 163-20785-04030557

PATIENT
  Age: 40 Year
  Sex: Male

DRUGS (7)
  1. THALOMID [Suspect]
     Indication: MULTIPLE MYELOMA
     Dosage: 400 MG, QD, ORAL
     Route: 048
     Dates: start: 19981119, end: 19990201
  2. CYCLOPHOSPHAMIDE [Suspect]
     Indication: MULTIPLE MYELOMA
     Dosage: 400 MG/M2
     Dates: start: 19991226, end: 19991229
  3. ADRIAMYCIN PFS [Suspect]
     Indication: MULTIPLE MYELOMA
     Dosage: 10 MG/M2
     Dates: start: 19991226, end: 19991229
  4. DEXAMETHASONE [Suspect]
     Indication: MULTIPLE MYELOMA
     Dosage: 40 MG, QD, INTRAVENOUS
     Route: 042
     Dates: start: 19991226, end: 19991229
  5. PEPCID [Concomitant]
  6. DIFLUCAN [Concomitant]
  7. NEUPOGEN [Concomitant]

REACTIONS (10)
  - ARTHRALGIA [None]
  - CHILLS [None]
  - COUGH [None]
  - EAR PAIN [None]
  - FEBRILE NEUTROPENIA [None]
  - INFLUENZA LIKE ILLNESS [None]
  - MYALGIA [None]
  - NASAL SINUS DRAINAGE [None]
  - OTITIS MEDIA [None]
  - PYREXIA [None]
